FAERS Safety Report 11130146 (Version 1)
Quarter: 2015Q2

REPORT INFORMATION
  Report Type: Spontaneous
  Country: US (occurrence: US)
  Receive Date: 20150521
  Receipt Date: 20150521
  Transmission Date: 20150821
  Serious: Yes (Disabling)
  Sender: FDA-Public Use
  Company Number: US-ALLERGAN-1509384US

PATIENT
  Age: 87 Year
  Sex: Male
  Weight: 71.66 kg

DRUGS (6)
  1. COMBIGAN[R] [Suspect]
     Active Substance: BRIMONIDINE TARTRATE\TIMOLOL MALEATE
     Indication: MACULAR DEGENERATION
     Dosage: UNK
     Route: 047
     Dates: start: 2011
  2. COMBIGAN[R] [Suspect]
     Active Substance: BRIMONIDINE TARTRATE\TIMOLOL MALEATE
     Indication: GLAUCOMA
  3. LUMIGAN [Suspect]
     Active Substance: BIMATOPROST
     Indication: MACULAR DEGENERATION
     Dosage: UNK
     Route: 047
     Dates: start: 2011
  4. LEVOTHYROXINE [Concomitant]
     Active Substance: LEVOTHYROXINE
     Indication: THYROID DISORDER
     Route: 048
  5. LUMIGAN [Suspect]
     Active Substance: BIMATOPROST
     Indication: GLAUCOMA
  6. MVI [Concomitant]
     Active Substance: VITAMINS
     Indication: VITAMIN SUPPLEMENTATION
     Route: 048

REACTIONS (1)
  - Blindness [Not Recovered/Not Resolved]

NARRATIVE: CASE EVENT DATE: 201411
